FAERS Safety Report 7223348-4 (Version None)
Quarter: 2011Q1

REPORT INFORMATION
  Report Type: 
  Country: None (occurrence: None)
  Receive Date: 20110112
  Receipt Date: 20100511
  Transmission Date: 20110831
  Serious: No
  Sender: FDA-Public Use
  Company Number: US-ALLERGAN-1006194US

PATIENT
  Sex: Female

DRUGS (5)
  1. SPIRONOLACTONE [Concomitant]
  2. CLEAR EYES [Concomitant]
  3. RESTASIS [Suspect]
     Indication: DRY EYE
  4. SYNTHROID [Concomitant]
  5. OMEPRAZOLE [Concomitant]

REACTIONS (1)
  - EYE IRRITATION [None]
